FAERS Safety Report 7406296-6 (Version None)
Quarter: 2011Q2

REPORT INFORMATION
  Report Type: 
  Country: None (occurrence: None)
  Receive Date: 20110411
  Receipt Date: 20110405
  Transmission Date: 20111010
  Serious: Yes (Hospitalization)
  Sender: FDA-Public Use
  Company Number: US-MERCK-1103USA01785

PATIENT
  Age: 86 Year
  Sex: Male
  Weight: 82 kg

DRUGS (2)
  1. VELCADE [Suspect]
     Indication: MULTIPLE MYELOMA
     Route: 042
     Dates: start: 20101119
  2. DECADRON [Suspect]
     Indication: MULTIPLE MYELOMA
     Route: 048
     Dates: start: 20101119

REACTIONS (4)
  - FALL [None]
  - ARTHRALGIA [None]
  - LUMBAR RADICULOPATHY [None]
  - SPINAL COLUMN STENOSIS [None]
